FAERS Safety Report 4895522-3 (Version None)
Quarter: 2006Q1

REPORT INFORMATION
  Report Type: 
  Country: None (occurrence: None)
  Receive Date: 20060130
  Receipt Date: 20060123
  Transmission Date: 20060701
  Serious: Yes (Death)
  Sender: FDA-Public Use
  Company Number: JP-BRACCO-BRO-009803

PATIENT
  Sex: Male
  Weight: 61 kg

DRUGS (8)
  1. IOPAMIRON [Suspect]
     Indication: ANGINA PECTORIS
     Dosage: 4-5 ML ONCE
     Route: 022
     Dates: start: 20060113, end: 20060113
  2. IOPAMIRON [Suspect]
     Indication: ARTERIOGRAM CORONARY
     Dosage: 4-5 ML ONCE
     Route: 022
     Dates: start: 20060113, end: 20060113
  3. XYLOCAINE                          /00923101/ [Interacting]
     Route: 050
     Dates: start: 20060113, end: 20060113
  4. DEPAS [Concomitant]
     Route: 048
     Dates: end: 20060113
  5. FRANDOL [Concomitant]
     Route: 048
     Dates: end: 20060113
  6. NORVASC                            /00972402/ [Concomitant]
     Route: 048
     Dates: end: 20060113
  7. PANALDINE [Concomitant]
     Route: 048
     Dates: end: 20060113
  8. SIGMART [Concomitant]
     Route: 048
     Dates: end: 20060113

REACTIONS (10)
  - ANAPHYLACTIC SHOCK [None]
  - BLOOD PRESSURE DECREASED [None]
  - GENERALISED OEDEMA [None]
  - HAEMORRHAGIC DIATHESIS [None]
  - HEPATIC FUNCTION ABNORMAL [None]
  - HOT FLUSH [None]
  - LOSS OF CONSCIOUSNESS [None]
  - PULMONARY CONGESTION [None]
  - PULSE ABSENT [None]
  - RENAL IMPAIRMENT [None]
